FAERS Safety Report 7800282-X (Version None)
Quarter: 2011Q4

REPORT INFORMATION
  Report Type: 
  Country: None (occurrence: None)
  Receive Date: 20111006
  Receipt Date: 20110927
  Transmission Date: 20120403
  Serious: Yes (Hospitalization)
  Sender: FDA-Public Use
  Company Number: JP-GLAXOSMITHKLINE-B0749565A

PATIENT
  Age: 76 Year
  Sex: Female

DRUGS (1)
  1. VALTREX [Suspect]
     Indication: HERPES ZOSTER
     Dosage: 3000MG PER DAY
     Route: 048
     Dates: start: 20110101

REACTIONS (5)
  - GAIT DISTURBANCE [None]
  - RENAL FAILURE ACUTE [None]
  - SPEECH DISORDER [None]
  - MOTOR DYSFUNCTION [None]
  - DEPRESSED LEVEL OF CONSCIOUSNESS [None]
